FAERS Safety Report 9826119 (Version 1)
Quarter: 2014Q1

REPORT INFORMATION
  Report Type: Spontaneous
  Country: FR (occurrence: None)
  Receive Date: 20140116
  Receipt Date: 20140116
  Transmission Date: 20141002
  Serious: Yes (Other)
  Sender: FDA-Public Use
  Company Number: None

PATIENT
  Age: 47 Year
  Sex: Male
  Weight: 68 kg

DRUGS (1)
  1. ROCEPHINE [Suspect]
     Indication: INFECTION
     Dosage: 1 DOSE OF 1 GRAM  ONLY ONCE  INTO THE MUSCLE?ONE SINGLE INJECTION
     Route: 030

REACTIONS (3)
  - Tinnitus [None]
  - Insomnia [None]
  - Hearing impaired [None]
